FAERS Safety Report 8220367-6 (Version None)
Quarter: 2012Q1

REPORT INFORMATION
  Report Type: 
  Country: None (occurrence: None)
  Receive Date: 20120320
  Receipt Date: 20120306
  Transmission Date: 20120608
  Serious: Yes (Other)
  Sender: FDA-Public Use
  Company Number: MX-SANOFI-AVENTIS-2011SA020513

PATIENT
  Age: 63 Year
  Sex: Female
  Weight: 65 kg

DRUGS (4)
  1. ENALAPRIL [Concomitant]
     Route: 048
     Dates: start: 19860101
  2. ALL OTHER THERAPEUTIC PRODUCTS [Concomitant]
     Route: 048
     Dates: start: 19860101
  3. LANTUS [Suspect]
     Indication: TYPE 2 DIABETES MELLITUS
     Dosage: DOSE: 34-36 IU
     Route: 058
     Dates: start: 20040101
  4. SITAGLIPTIN AND METFORMIN HYDROCHLORIDE [Concomitant]
     Indication: TYPE 2 DIABETES MELLITUS
     Route: 048
     Dates: start: 20070101

REACTIONS (5)
  - BREAST CANCER [None]
  - HYPERGLYCAEMIA [None]
  - DRY SKIN [None]
  - SKIN DISORDER [None]
  - PIGMENTATION DISORDER [None]
